FAERS Safety Report 4907432-3 (Version None)
Quarter: 2006Q1

REPORT INFORMATION
  Report Type: 
  Country: None (occurrence: None)
  Receive Date: 20060207
  Receipt Date: 20060127
  Transmission Date: 20060701
  Serious: Yes (Hospitalization, Other)
  Sender: FDA-Public Use
  Company Number: 2006014540

PATIENT
  Age: 54 Year
  Sex: Male
  Weight: 145.151 kg

DRUGS (3)
  1. NORVASC [Suspect]
     Indication: HYPERTENSION
     Dosage: 5 MG (5 MG, QD INTERVAL:  EVERY DAY)
  2. GLYBURIDE [Concomitant]
  3. ACTOS [Concomitant]

REACTIONS (2)
  - CEREBROVASCULAR ACCIDENT [None]
  - DIABETES MELLITUS [None]
